FAERS Safety Report 6657844-5 (Version None)
Quarter: 2010Q1

REPORT INFORMATION
  Report Type: 
  Country: None (occurrence: None)
  Receive Date: 20100326
  Receipt Date: 20100315
  Transmission Date: 20100710
  Serious: Yes (Hospitalization, Other)
  Sender: FDA-Public Use
  Company Number: DSU-2010-01136

PATIENT
  Age: 77 Year
  Sex: Male
  Weight: 81.6 kg

DRUGS (22)
  1. BENICAR [Suspect]
     Indication: HYPERTENSION
     Dosage: PER ORAL, 5 MG (5 MG QD), PER ORAL
     Route: 048
     Dates: start: 20050101, end: 20090518
  2. BENICAR [Suspect]
     Indication: HYPERTENSION
     Dosage: PER ORAL, 5 MG (5 MG QD), PER ORAL
     Route: 048
     Dates: start: 20090807, end: 20090814
  3. IMC-A12 (ANTI-IGF-IR MAB) (INTRAVENOUS INFUSION) [Suspect]
     Indication: PROSTATE CANCER METASTATIC
     Dosage: 70 MG (490 MG, ONCE A WEEK), INTRAVENOUS
     Route: 042
     Dates: start: 20090612, end: 20090807
  4. IMC-1121B (ANTI-VEGFR2 MAB) [Suspect]
     Indication: PROSTATE CANCER METASTATIC
     Dosage: DRUG NOT ADMINISTERED
  5. MITOXANTRONE [Suspect]
     Indication: PROSTATE CANCER METASTATIC
     Dosage: 23 MG (23 MG, QD), PER ORAL
     Route: 048
     Dates: start: 20090612, end: 20090727
  6. PREDNISONE [Suspect]
     Indication: PROSTATE CANCER METASTATIC
     Dosage: 5 MG (5 MG, QD0, PER ORAL
     Route: 048
     Dates: start: 20090612, end: 20090812
  7. FERROUS SULFATE TAB [Concomitant]
  8. STOOL SOFTENER (DOCUSATE SODIUM) [Concomitant]
  9. ASPIRIN [Concomitant]
  10. CRESTOR(OSUVASTATIN CALCIUM) [Concomitant]
  11. LORAZEPAM [Concomitant]
  12. POTASSIUM (POTASSIUM) (POTASSIUM) [Concomitant]
  13. DARVOCET (PARACETAMOL) (PARACETAMOL) [Concomitant]
  14. ZOFRAN [Concomitant]
  15. GABAPENTIN [Concomitant]
  16. SIMVASTATIN [Concomitant]
  17. KEFLEX (CEFALEXIN MONOHYDRATE) (CEFALEXIN MONOHYDRATE) [Concomitant]
  18. CIPRO (CIPROFLOXACIN) (CIPROFLOXACIN) [Concomitant]
  19. SENNA (SENNA ALEXANDRINA) (SENNA ALEXANDRINA) [Concomitant]
  20. NEULASTA [Concomitant]
  21. COMPAZINE (PROCHLORPERAZINE EDISYLATE) (PROCHLORPERAZINE EDISYLATE) [Concomitant]
  22. LUPRON (LEUPRORELIN ACETATE) (LEUPRORELIN ACETATE) [Concomitant]

REACTIONS (12)
  - ARTHRALGIA [None]
  - DIZZINESS [None]
  - HAEMATOCRIT DECREASED [None]
  - HAEMOGLOBIN DECREASED [None]
  - HEAD INJURY [None]
  - JOINT INJURY [None]
  - LOSS OF CONSCIOUSNESS [None]
  - METASTASIS [None]
  - PLATELET COUNT DECREASED [None]
  - SICK SINUS SYNDROME [None]
  - SYNCOPE [None]
  - URINARY TRACT INFECTION [None]
